FAERS Safety Report 9308351 (Version 1)
Quarter: 2013Q2

REPORT INFORMATION
  Report Type: Spontaneous
  Country: FR (occurrence: FR)
  Receive Date: 20130524
  Receipt Date: 20130524
  Transmission Date: 20140414
  Serious: Yes (Other)
  Sender: FDA-Public Use
  Company Number: FR-ABBOTT-13P-056-1092850-00

PATIENT
  Age: 43 Year
  Sex: Female

DRUGS (7)
  1. KALETRA TABLETS 200/50 [Suspect]
     Indication: HIV INFECTION
     Route: 048
     Dates: start: 20130220
  2. EVIPLERA [Suspect]
     Indication: HIV INFECTION
     Route: 048
     Dates: start: 20121214, end: 20130220
  3. TRUVADA [Suspect]
     Indication: HIV INFECTION
     Route: 048
     Dates: start: 20130220
  4. SERESTA [Concomitant]
     Indication: PRODUCT USED FOR UNKNOWN INDICATION
  5. ZITHROMAX [Concomitant]
     Indication: PRODUCT USED FOR UNKNOWN INDICATION
  6. PENTACARINAT [Concomitant]
     Indication: PNEUMOCYSTIS JIROVECII PNEUMONIA
  7. PENTACARINAT [Concomitant]
     Indication: PROPHYLAXIS

REACTIONS (1)
  - Abortion spontaneous [Unknown]
